FAERS Safety Report 6421347-3 (Version None)
Quarter: 2009Q4

REPORT INFORMATION
  Report Type: 
  Country: None (occurrence: None)
  Receive Date: 20091030
  Receipt Date: 20091016
  Transmission Date: 20100525
  Serious: Yes (Other)
  Sender: FDA-Public Use
  Company Number: PHHY2009BR45231

PATIENT
  Age: 79 Year
  Sex: Male
  Weight: 80 kg

DRUGS (4)
  1. DIOCOMB SI [Suspect]
     Dosage: 80/20 MG ONCE A DAY
     Dates: start: 20040101
  2. SOMALGIN CARDIO [Concomitant]
     Dosage: UNK
     Route: 048
  3. DIAZEPAM [Concomitant]
     Indication: DEMENTIA ALZHEIMER'S TYPE
     Dosage: 5 OR 10 MG PER DAY DEPENDING OF PATIENT CONDITION
  4. PAROXETINE [Concomitant]
     Dosage: 1 TABLET A DAY
     Dates: start: 20070101

REACTIONS (2)
  - DEMENTIA ALZHEIMER'S TYPE [None]
  - VERTIGO [None]
